FAERS Safety Report 11940016 (Version 1)
Quarter: 2016Q1

REPORT INFORMATION
  Report Type: Spontaneous
  Country: IN (occurrence: IN)
  Receive Date: 20160122
  Receipt Date: 20160122
  Transmission Date: 20160526
  Serious: Yes (Other)
  Sender: FDA-Public Use
  Company Number: IN-WATSON-2016-00870

PATIENT
  Age: 65 Year
  Sex: Female

DRUGS (2)
  1. AMIODARONE (UNKNOWN) [Suspect]
     Active Substance: AMIODARONE
     Indication: ARRHYTHMIA
     Dosage: 200 MG, BID
     Route: 065
  2. METOPROLOL (UNKNOWN) [Suspect]
     Active Substance: METOPROLOL
     Indication: ARRHYTHMIA
     Dosage: 50 MG, DAILY
     Route: 065

REACTIONS (2)
  - Atrial tachycardia [Recovered/Resolved]
  - Sinoatrial block [Recovered/Resolved]
